FAERS Safety Report 10301902 (Version 3)
Quarter: 2014Q4

REPORT INFORMATION
  Report Type: Spontaneous
  Country: JP (occurrence: JP)
  Receive Date: 20140714
  Receipt Date: 20141121
  Transmission Date: 20150528
  Serious: Yes (Life-Threatening, Hospitalization)
  Sender: FDA-Public Use
  Company Number: JP-ASTRAZENECA-2014SE50421

PATIENT
  Age: 23143 Day
  Sex: Male

DRUGS (9)
  1. SEROQUEL [Suspect]
     Active Substance: QUETIAPINE FUMARATE
     Indication: PRODUCT USED FOR UNKNOWN INDICATION
     Route: 048
     Dates: end: 20140627
  2. VALERIN [Concomitant]
     Active Substance: VALPROATE SODIUM
     Dosage: 200, TWICE DAILY+1 DF AT BEDTIME
     Dates: end: 20140627
  3. MAGLAX [Concomitant]
     Active Substance: MAGNESIUM OXIDE
     Dosage: 500, 1 TABLET TWICE DAILY
     Dates: end: 20140627
  4. CYANAMIDE [Concomitant]
     Active Substance: CYANAMIDE
     Dosage: 3 ML, INTHE MORNING
     Route: 048
     Dates: end: 20140627
  5. ZYPREXA [Concomitant]
     Active Substance: OLANZAPINE
     Dosage: 5, 1 FD AT BEDTIME
     Dates: start: 20140322
  6. HALCION [Concomitant]
     Active Substance: TRIAZOLAM
     Dosage: 0.25, 1 TABLETAT BEDTIME
     Dates: end: 20140627
  7. CERCINE [Concomitant]
     Active Substance: DIAZEPAM
     Dosage: 3, 1 TABLET AT BEDTIME
     Dates: start: 20140322
  8. MAGMITT [Concomitant]
     Active Substance: MAGNESIUM OXIDE
  9. VALERIN [Concomitant]
     Active Substance: VALPROATE SODIUM
     Dosage: 200, 1 DF, TWICE DAILY
     Dates: start: 20140322

REACTIONS (10)
  - Blood creatine increased [Unknown]
  - Off label use [Unknown]
  - Blood potassium increased [Unknown]
  - Glycosylated haemoglobin increased [Unknown]
  - Diabetic ketoacidosis [Recovered/Resolved with Sequelae]
  - Blood creatine phosphokinase increased [Unknown]
  - Fulminant type 1 diabetes mellitus [Not Recovered/Not Resolved]
  - Hepatic enzyme increased [Unknown]
  - Blood urea increased [Unknown]
  - Blood triglycerides increased [Unknown]

NARRATIVE: CASE EVENT DATE: 20140628
